FAERS Safety Report 13146886 (Version 2)
Quarter: 2017Q3

REPORT INFORMATION
  Report Type: Report from Study
  Country: US (occurrence: US)
  Receive Date: 20170124
  Receipt Date: 20170728
  Transmission Date: 20171127
  Serious: No
  Sender: FDA-Public Use
  Company Number: US-AMGEN-USASL2016145617

PATIENT
  Age: 63 Year
  Sex: Female
  Weight: 78.46 kg

DRUGS (3)
  1. REPATHA [Suspect]
     Active Substance: EVOLOCUMAB
     Indication: DRUG HYPERSENSITIVITY
  2. REPATHA [Suspect]
     Active Substance: EVOLOCUMAB
     Indication: BLOOD CHOLESTEROL INCREASED
     Dosage: 140 MG, Q2WK
     Route: 030
     Dates: start: 20160927, end: 20170322
  3. PRALUENT [Suspect]
     Active Substance: ALIROCUMAB
     Indication: PRODUCT USED FOR UNKNOWN INDICATION
     Dosage: UNK
     Route: 065
     Dates: start: 20160922

REACTIONS (7)
  - Arthralgia [Unknown]
  - Back pain [Unknown]
  - Joint swelling [Unknown]
  - Confusional state [Unknown]
  - Musculoskeletal stiffness [Unknown]
  - Influenza like illness [Recovered/Resolved]
  - Musculoskeletal pain [Unknown]

NARRATIVE: CASE EVENT DATE: 20160926
